FAERS Safety Report 5644108-1 (Version None)
Quarter: 2008Q1

REPORT INFORMATION
  Report Type: 
  Country: None (occurrence: None)
  Receive Date: 20080226
  Receipt Date: 20080213
  Transmission Date: 20080703
  Serious: No
  Sender: FDA-Public Use
  Company Number: A0710060A

PATIENT
  Age: 48 Year
  Sex: Male
  Weight: 65.8623 kg

DRUGS (3)
  1. LAPATINIB TABLET (LAPATINIB) [Suspect]
     Indication: SQUAMOUS CELL CARCINOMA
     Dosage: 1500 MG/PER DAY/ORAL
     Route: 048
     Dates: start: 20080115
  2. CISPLATIN [Suspect]
     Indication: SQUAMOUS CELL CARCINOMA
     Dosage: 100 MG/M2/CYCLIC/INTRAVENOUS
     Route: 042
     Dates: start: 20080122
  3. RADIOTHERAPY (FORMULATION UNKNOWN) (RADIOTHERAPY) [Suspect]
     Indication: SQUAMOUS CELL CARCINOMA
     Dosage: 2 GRAY/PER DAY/TOPICAL
     Route: 061
     Dates: start: 20080122

REACTIONS (1)
  - MUCOSAL INFLAMMATION [None]
